FAERS Safety Report 21874053 (Version 1)
Quarter: 2023Q1

REPORT INFORMATION
  Report Type: Report from Study
  Country: US (occurrence: US)
  Receive Date: 20230117
  Receipt Date: 20230117
  Transmission Date: 20230417
  Serious: No
  Sender: FDA-Public Use
  Company Number: US-ABBVIE-4238956

PATIENT
  Sex: Female

DRUGS (3)
  1. HUMIRA [Suspect]
     Active Substance: ADALIMUMAB
     Indication: Crohn^s disease
     Dosage: EVENT START DATE FOR RASH- APRIL 2022, UNKNOWN FOR DRUG HYPERSENSITIVITY AND CONDITION AGGRAVATED...
     Route: 058
  2. DUPIXENT [Suspect]
     Active Substance: DUPILUMAB
     Indication: Neurodermatitis
     Dosage: DRUG STOP DATE- 09 2022
     Route: 042
     Dates: start: 20220914
  3. DUPIXENT [Suspect]
     Active Substance: DUPILUMAB
     Indication: Neurodermatitis
     Route: 042
     Dates: start: 20220928

REACTIONS (15)
  - Dry skin [Recovering/Resolving]
  - Therapeutic response shortened [Unknown]
  - Pruritus [Unknown]
  - Condition aggravated [Unknown]
  - Skin burning sensation [Unknown]
  - Pain [Unknown]
  - Drug ineffective [Recovering/Resolving]
  - Skin exfoliation [Unknown]
  - Rash [Unknown]
  - Drug hypersensitivity [Unknown]
  - Scab [Unknown]
  - Device issue [Unknown]
  - Incorrect dose administered [Unknown]
  - Skin disorder [Recovering/Resolving]
  - Accidental exposure to product [Unknown]
